FAERS Safety Report 8612212-1 (Version None)
Quarter: 2012Q3

REPORT INFORMATION
  Report Type: 
  Country: None (occurrence: None)
  Receive Date: 20120813
  Receipt Date: 20120813
  Transmission Date: 20120928
  Serious: No
  Sender: FDA-Public Use
  Company Number: None

PATIENT
  Sex: Female

DRUGS (1)
  1. SPRYCEL [Suspect]
     Dosage: 50 MG QD PO
     Route: 048
     Dates: start: 20110201

REACTIONS (3)
  - MUSCLE FATIGUE [None]
  - MUSCLE ATROPHY [None]
  - ASTHENIA [None]
